FAERS Safety Report 24149033 (Version 1)
Quarter: 2024Q3

REPORT INFORMATION
  Report Type: Spontaneous
  Country: US (occurrence: US)
  Receive Date: 20240729
  Receipt Date: 20240729
  Transmission Date: 20241017
  Serious: No
  Sender: BIOMARIN
  Company Number: US-BIOMARINAP-US-2024-159321

PATIENT

DRUGS (1)
  1. VOXZOGO [Suspect]
     Active Substance: VOSORITIDE
     Indication: Product used for unknown indication
     Dosage: 0.32 MILLIGRAM, QD
     Route: 058
     Dates: start: 20240123, end: 20240422

REACTIONS (2)
  - Arthralgia [Unknown]
  - Overdose [Unknown]

NARRATIVE: CASE EVENT DATE: 20240422
